FAERS Safety Report 6352502 (Version 9)
Quarter: 2014Q1

REPORT INFORMATION
  Report Type: Spontaneous
  Country: US (occurrence: US)
  Receive Date: 20070709
  Receipt Date: 20140322
  Transmission Date: 20141002
  Serious: Yes (Hospitalization, Other)
  Sender: FDA-Public Use
  Company Number: US-ROCHE-485880

PATIENT
  Age: 22 Year
  Sex: Male
  Weight: 90.7 kg

DRUGS (3)
  1. ACCUTANE [Suspect]
     Indication: ACNE
     Route: 048
     Dates: start: 199809, end: 199902
  2. ACCUTANE [Suspect]
     Route: 048
     Dates: start: 20000103, end: 20000503
  3. DESONIDE [Concomitant]
     Route: 061

REACTIONS (10)
  - Colitis ulcerative [Unknown]
  - Inflammatory bowel disease [Unknown]
  - Pseudomembranous colitis [Unknown]
  - Clostridium difficile colitis [Unknown]
  - Crohn^s disease [Unknown]
  - Colitis ulcerative [Unknown]
  - Tonsillectomy [Recovered/Resolved]
  - Enamel anomaly [Unknown]
  - Arthralgia [Unknown]
  - Back pain [Recovering/Resolving]
